FAERS Safety Report 7053336-2 (Version None)
Quarter: 2010Q4

REPORT INFORMATION
  Report Type: 
  Country: None (occurrence: None)
  Receive Date: 20101020
  Receipt Date: 20101011
  Transmission Date: 20110411
  Serious: Yes (Other)
  Sender: FDA-Public Use
  Company Number: US-ASTRAZENECA-2010SE47969

PATIENT
  Age: 40 Year
  Sex: Female

DRUGS (5)
  1. SEROQUEL [Suspect]
     Route: 048
  2. BETASERON [Suspect]
     Indication: MULTIPLE SCLEROSIS
     Dosage: TOTAL DAILY DOSE 8 MIU, EVERY OTHER DAY
     Route: 058
     Dates: start: 20050509
  3. CIPROFLOXACIN [Concomitant]
     Indication: PROPHYLAXIS
     Dates: start: 20090801, end: 20100601
  4. AMBIEN [Concomitant]
  5. IRON [Concomitant]
     Indication: ANAEMIA
     Dates: start: 20090801

REACTIONS (8)
  - ANAEMIA [None]
  - ARTHRITIS [None]
  - BLOOD IRON DECREASED [None]
  - MULTIPLE SCLEROSIS [None]
  - URINARY TRACT INFECTION [None]
  - WEIGHT DECREASED [None]
  - WEIGHT INCREASED [None]
  - WHITE BLOOD CELL COUNT DECREASED [None]
